FAERS Safety Report 14893944 (Version 3)
Quarter: 2018Q3

REPORT INFORMATION
  Report Type: Spontaneous
  Country: US (occurrence: US)
  Receive Date: 20180514
  Receipt Date: 20180720
  Transmission Date: 20181010
  Serious: No
  Sender: FDA-Public Use
  Company Number: US-PFIZER INC-2018194427

PATIENT
  Age: 66 Year
  Sex: Female

DRUGS (1)
  1. XELJANZ [Suspect]
     Active Substance: TOFACITINIB CITRATE
     Dosage: 5 MG, TWICE DAILY

REACTIONS (4)
  - Discomfort [Unknown]
  - Joint swelling [Recovering/Resolving]
  - Joint swelling [Unknown]
  - Disease recurrence [Recovering/Resolving]
